FAERS Safety Report 11099391 (Version 1)
Quarter: 2015Q2

REPORT INFORMATION
  Report Type: Spontaneous
  Country: US (occurrence: US)
  Receive Date: 20150508
  Receipt Date: 20150508
  Transmission Date: 20150821
  Serious: Yes (Hospitalization)
  Sender: FDA-Public Use
  Company Number: US-BIOGENIDEC-2015BI057298

PATIENT
  Age: 36 Year
  Sex: Female

DRUGS (1)
  1. AVONEX [Suspect]
     Active Substance: INTERFERON BETA-1A
     Indication: RELAPSING-REMITTING MULTIPLE SCLEROSIS
     Route: 030

REACTIONS (13)
  - Gastric bypass [Recovered/Resolved]
  - Diabetes mellitus [Not Recovered/Not Resolved]
  - Weight increased [Not Recovered/Not Resolved]
  - Feeling hot [Not Recovered/Not Resolved]
  - Multiple sclerosis relapse [Recovered/Resolved]
  - Asthenia [Not Recovered/Not Resolved]
  - Abnormal loss of weight [Recovered/Resolved]
  - Alopecia [Not Recovered/Not Resolved]
  - Hypophagia [Not Recovered/Not Resolved]
  - Hot flush [Not Recovered/Not Resolved]
  - Gallbladder operation [Recovered/Resolved]
  - Influenza like illness [Recovered/Resolved]
  - Swelling [Not Recovered/Not Resolved]

NARRATIVE: CASE EVENT DATE: 2000
